FAERS Safety Report 9403351 (Version 4)
Quarter: 2014Q1

REPORT INFORMATION
  Report Type: Spontaneous
  Country: US (occurrence: US)
  Receive Date: 20130716
  Receipt Date: 20140130
  Transmission Date: 20141002
  Serious: Yes (Hospitalization)
  Sender: FDA-Public Use
  Company Number: US-B.I. PHARMACEUTICALS,INC./RIDGEFIELD-2012-BP-11018BP

PATIENT
  Age: 83 Year
  Sex: Male
  Weight: 73.48 kg

DRUGS (9)
  1. PRADAXA [Suspect]
     Indication: ATRIAL FIBRILLATION
     Dosage: 300 MG
     Route: 048
     Dates: start: 20110204, end: 20111014
  2. PRADAXA [Suspect]
     Indication: ANTICOAGULANT THERAPY
  3. ASPIRIN [Concomitant]
     Dosage: 81 MG
     Route: 048
  4. PANTOPRAZOLE [Concomitant]
     Dates: start: 2005, end: 2012
  5. METOPROLOL XL [Concomitant]
     Dosage: 50 MG
     Route: 048
     Dates: start: 2005, end: 2012
  6. LISINOPRIL [Concomitant]
     Dosage: 10 MG
     Route: 048
     Dates: start: 2005, end: 2012
  7. LIPITOR [Concomitant]
     Indication: HYPERLIPIDAEMIA
     Dosage: 40 MG
     Route: 048
     Dates: start: 2005, end: 2011
  8. TYLENOL EXTRA STRENGTH PM [Concomitant]
  9. AMOXICILLIN [Concomitant]

REACTIONS (3)
  - Upper gastrointestinal haemorrhage [Unknown]
  - Haemorrhagic anaemia [Unknown]
  - Memory impairment [Unknown]
